FAERS Safety Report 11943304 (Version 1)
Quarter: 2016Q1

REPORT INFORMATION
  Report Type: Spontaneous
  Country: US (occurrence: US)
  Receive Date: 20160125
  Receipt Date: 20160125
  Transmission Date: 20160526
  Serious: No
  Sender: FDA-Public Use
  Company Number: US-UNITED THERAPEUTICS-UNT-2015-007155

PATIENT
  Sex: Male

DRUGS (2)
  1. REMODULIN [Suspect]
     Active Substance: TREPROSTINIL
     Indication: PRODUCT USED FOR UNKNOWN INDICATION
     Dosage: 0.018 ?G/KG, CONTINUING
     Route: 041
     Dates: start: 20120711
  2. TYVASO [Suspect]
     Active Substance: TREPROSTINIL
     Indication: PRODUCT USED FOR UNKNOWN INDICATION
     Dosage: 18 ?G, QID
     Dates: start: 20150610, end: 20150611

REACTIONS (5)
  - Anxiety [Unknown]
  - Confusional state [Unknown]
  - Fear [Unknown]
  - Feeling jittery [Unknown]
  - Depressed mood [Unknown]

NARRATIVE: CASE EVENT DATE: 20150610
